FAERS Safety Report 5672187-4 (Version None)
Quarter: 2008Q1

REPORT INFORMATION
  Report Type: 
  Country: None (occurrence: None)
  Receive Date: 20080319
  Receipt Date: 20080310
  Transmission Date: 20080703
  Serious: Yes (Other)
  Sender: FDA-Public Use
  Company Number: US-ROCHE-552336

PATIENT
  Age: 33 Year
  Sex: Male

DRUGS (1)
  1. TAMIFLU [Suspect]
     Dosage: THE PATIENT TOOK TAMIFLU 2 TIMES A DAY FOR 4 DAYS.
     Route: 065

REACTIONS (4)
  - DELUSION [None]
  - HALLUCINATION [None]
  - PYREXIA [None]
  - RESTLESSNESS [None]
